FAERS Safety Report 21304550 (Version 1)
Quarter: 2022Q3

REPORT INFORMATION
  Report Type: Spontaneous
  Country: US (occurrence: None)
  Receive Date: 20220907
  Receipt Date: 20220907
  Transmission Date: 20221027
  Serious: No
  Sender: FDA-Public Use
  Company Number: US-ARIS GLOBAL-202108-1488

PATIENT
  Sex: Female

DRUGS (17)
  1. OXERVATE [Suspect]
     Active Substance: CENEGERMIN-BKBJ
     Indication: Neurotrophic keratopathy
     Route: 047
     Dates: start: 20210810
  2. OMEGAMINT FISH OIL [Concomitant]
  3. ALLOPURINOL [Concomitant]
     Active Substance: ALLOPURINOL
  4. NIFEDIPINE [Concomitant]
     Active Substance: NIFEDIPINE
  5. CALCITRIOL [Concomitant]
     Active Substance: CALCITRIOL
  6. REFRESH CLASSIC [Concomitant]
     Active Substance: POLYVINYL ALCOHOL\POVIDONE
  7. DORZOLAMIDE\TIMOLOL [Concomitant]
     Active Substance: DORZOLAMIDE\TIMOLOL
  8. PRED FORTE [Concomitant]
     Active Substance: PREDNISOLONE ACETATE
     Dosage: DROPS SUSPENSION
  9. SOTALOL [Concomitant]
     Active Substance: SOTALOL
  10. KLOR-CON-EF [Concomitant]
  11. VITAMIN D3 [Concomitant]
     Active Substance: CHOLECALCIFEROL
  12. ELIQUIS [Concomitant]
     Active Substance: APIXABAN
  13. FERROUS SULFATE [Concomitant]
     Active Substance: FERROUS SULFATE
     Dosage: 325 (65) MG
  14. FUROSEMIDE [Concomitant]
     Active Substance: FUROSEMIDE
  15. SIMVASTATIN [Concomitant]
     Active Substance: SIMVASTATIN
  16. CLONIDINE [Concomitant]
     Active Substance: CLONIDINE
     Dosage: 0.1 MG/24 H TRANSDERMAL
  17. AVAPRO [Concomitant]
     Active Substance: IRBESARTAN

REACTIONS (2)
  - Haemorrhoidal haemorrhage [Unknown]
  - Product dose omission issue [Unknown]
